FAERS Safety Report 6657121-2 (Version None)
Quarter: 2010Q1

REPORT INFORMATION
  Report Type: 
  Country: None (occurrence: None)
  Receive Date: 20100330
  Receipt Date: 20100319
  Transmission Date: 20100710
  Serious: Yes (Life-Threatening)
  Sender: FDA-Public Use
  Company Number: US-JNJFOC-20100306110

PATIENT
  Age: 72 Year
  Sex: Male
  Weight: 92 kg

DRUGS (10)
  1. HALDOL [Suspect]
     Indication: DRUG USE FOR UNKNOWN INDICATION
     Route: 042
  2. HALDOL [Suspect]
     Route: 042
  3. UNKNOWN MEDICATION [Suspect]
     Indication: ACUTE CORONARY SYNDROME
     Route: 048
  4. UNKNOWN MEDICATION [Suspect]
     Route: 048
  5. NITROGLYCERIN [Concomitant]
     Route: 065
  6. FUROSEMIDE [Concomitant]
     Route: 065
  7. NOREPINEPHRINE [Concomitant]
     Route: 065
  8. REGULAR INSULIN [Concomitant]
     Route: 065
  9. CHLORHEXIDINE GLUCONATE [Concomitant]
     Route: 065
  10. PROPOFOL [Concomitant]
     Route: 065

REACTIONS (6)
  - CARDIOGENIC SHOCK [None]
  - FLUID OVERLOAD [None]
  - INCORRECT ROUTE OF DRUG ADMINISTRATION [None]
  - LEFT VENTRICULAR DYSFUNCTION [None]
  - RESPIRATORY FAILURE [None]
  - THROMBOCYTOPENIA [None]
